FAERS Safety Report 11633046 (Version 1)
Quarter: 2015Q4

REPORT INFORMATION
  Report Type: Spontaneous
  Country: KR (occurrence: KR)
  Receive Date: 20151015
  Receipt Date: 20151015
  Transmission Date: 20160304
  Serious: Yes (Hospitalization)
  Sender: FDA-Public Use
  Company Number: KR-AMGEN-KORCT2015107908

PATIENT
  Age: 67 Year
  Sex: Male

DRUGS (18)
  1. DOXORUBICIN [Concomitant]
     Active Substance: DOXORUBICIN
     Dosage: 70.5 MG, UNK
     Route: 042
     Dates: start: 20150914, end: 20150914
  2. PREDNISOLONE. [Concomitant]
     Active Substance: PREDNISOLONE
     Dosage: 60 MG, UNK
     Route: 048
     Dates: start: 20150817, end: 20150817
  3. RITUXIMAB [Concomitant]
     Active Substance: RITUXIMAB
     Dosage: 705 MG, UNK
     Route: 042
     Dates: start: 20150914, end: 20150914
  4. DOXORUBICIN [Concomitant]
     Active Substance: DOXORUBICIN
     Dosage: 70.13 MG, UNK
     Route: 042
     Dates: start: 20150817, end: 20150817
  5. RITUXIMAB [Concomitant]
     Active Substance: RITUXIMAB
     Dosage: 701.25 MG, UNK
     Route: 042
     Dates: start: 20150817, end: 20150817
  6. VINCRISTINE [Concomitant]
     Active Substance: VINCRISTINE
     Dosage: 2 MG, UNK
     Route: 042
     Dates: start: 20150724, end: 20150724
  7. RITUXIMAB [Concomitant]
     Active Substance: RITUXIMAB
     Indication: NON-HODGKIN^S LYMPHOMA
     Dosage: 705 MG, UNK
     Route: 042
     Dates: start: 20150724, end: 20150724
  8. VINCRISTINE [Concomitant]
     Active Substance: VINCRISTINE
     Dosage: 2 MG, UNK
     Route: 042
     Dates: start: 20150817, end: 20150817
  9. PREDNISOLONE. [Concomitant]
     Active Substance: PREDNISOLONE
     Indication: NON-HODGKIN^S LYMPHOMA
     Dosage: 60 MG, UNK
     Route: 048
     Dates: start: 20150724, end: 20150724
  10. PREDNISOLONE. [Concomitant]
     Active Substance: PREDNISOLONE
     Dosage: 60 MG, UNK
     Route: 048
     Dates: start: 20150914, end: 20150914
  11. CYCLOPHOSPHAMIDE. [Concomitant]
     Active Substance: CYCLOPHOSPHAMIDE
     Dosage: 1057.5 MG, UNK
     Route: 042
     Dates: start: 20150914, end: 20150914
  12. G-LASTA [Suspect]
     Active Substance: PEGFILGRASTIM
     Indication: FEBRILE NEUTROPENIA
     Dosage: 6 MG, 1X/3WEEKS
     Route: 058
     Dates: start: 20150725
  13. G-LASTA [Suspect]
     Active Substance: PEGFILGRASTIM
     Dosage: 6 MG, 1X/3WEEKS
     Route: 058
     Dates: start: 20150818
  14. G-LASTA [Suspect]
     Active Substance: PEGFILGRASTIM
     Dosage: 6 MG, 1X/3WEEKS
     Route: 058
     Dates: start: 20150915
  15. CYCLOPHOSPHAMIDE. [Concomitant]
     Active Substance: CYCLOPHOSPHAMIDE
     Indication: NON-HODGKIN^S LYMPHOMA
     Dosage: 1057.5 MG, UNK
     Route: 042
     Dates: start: 20150724, end: 20150724
  16. CYCLOPHOSPHAMIDE. [Concomitant]
     Active Substance: CYCLOPHOSPHAMIDE
     Dosage: 1051.88 MG, UNK
     Route: 042
     Dates: start: 20150817, end: 20150817
  17. DOXORUBICIN [Concomitant]
     Active Substance: DOXORUBICIN
     Indication: NON-HODGKIN^S LYMPHOMA
     Dosage: 70.5 MG, UNK
     Route: 042
     Dates: start: 20150724, end: 20150724
  18. VINCRISTINE [Concomitant]
     Active Substance: VINCRISTINE
     Dosage: 2 MG, UNK
     Route: 042
     Dates: start: 20150914, end: 20150914

REACTIONS (1)
  - Pneumonitis [Not Recovered/Not Resolved]

NARRATIVE: CASE EVENT DATE: 20150928
